FAERS Safety Report 20501143 (Version 2)
Quarter: 2023Q4

REPORT INFORMATION
  Report Type: Spontaneous
  Country: US (occurrence: US)
  Receive Date: 20220222
  Receipt Date: 20231030
  Transmission Date: 20240110
  Serious: Yes (Death)
  Sender: FDA-Public Use
  Company Number: US-UCBSA-2022008061

PATIENT
  Age: 57 Year
  Sex: Female
  Weight: 100 kg

DRUGS (1)
  1. CIMZIA [Suspect]
     Active Substance: CERTOLIZUMAB PEGOL
     Indication: Rheumatoid arthritis
     Dosage: 200 MILLIGRAM, EV 2 WEEKS(QOW)
     Route: 058
     Dates: start: 20210623, end: 20220214

REACTIONS (1)
  - Death [Fatal]

NARRATIVE: CASE EVENT DATE: 20220214
